APPROVED DRUG PRODUCT: ADRENALIN
Active Ingredient: EPINEPHRINE
Strength: EQ 30MG BASE/30ML (EQ 1MG BASE/ML)
Dosage Form/Route: SOLUTION;INTRAMUSCULAR, INTRAVENOUS, SUBCUTANEOUS
Application: N204640 | Product #001 | TE Code: AP
Applicant: PH HEALTH LTD
Approved: Dec 18, 2013 | RLD: Yes | RS: Yes | Type: RX

PATENTS:
Patent 9295657 | Expires: Mar 13, 2035
Patent 10130592 | Expires: Mar 13, 2035
Patent 9119876 | Expires: Mar 13, 2035
Patent 12280024 | Expires: Mar 13, 2035